FAERS Safety Report 9170508 (Version 1)
Quarter: 2013Q1

REPORT INFORMATION
  Report Type: Spontaneous
  Country: US (occurrence: None)
  Receive Date: 20130315
  Receipt Date: 20130315
  Transmission Date: 20140127
  Serious: Yes (Life-Threatening, Hospitalization)
  Sender: FDA-Public Use
  Company Number: None

PATIENT
  Age: 55 Year
  Sex: Female
  Weight: 89.81 kg

DRUGS (1)
  1. ISOVUE [Suspect]
     Route: 042
     Dates: start: 20130311, end: 20130311

REACTIONS (5)
  - Malaise [None]
  - Dyspnoea [None]
  - Pallor [None]
  - Unresponsive to stimuli [None]
  - Cardio-respiratory arrest [None]
